FAERS Safety Report 22196532 (Version 1)
Quarter: 2023Q2

REPORT INFORMATION
  Report Type: Spontaneous
  Country: SA (occurrence: SA)
  Receive Date: 20230411
  Receipt Date: 20230411
  Transmission Date: 20230721
  Serious: Yes (Life-Threatening, Hospitalization)
  Sender: FDA-Public Use
  Company Number: SA-Sudair Pharmaceutical Company-202300004

PATIENT
  Age: 52 Year
  Sex: Female
  Weight: 48 kg

DRUGS (2)
  1. CAPECITABINE [Suspect]
     Active Substance: CAPECITABINE
     Indication: Rectal cancer
     Dosage: 1 G/M2 BID (14 DAYS)
     Route: 048
     Dates: start: 20221017, end: 20221109
  2. OXALIPLATIN [Concomitant]
     Active Substance: OXALIPLATIN
     Indication: Rectal cancer

REACTIONS (14)
  - Hypotension [Recovering/Resolving]
  - Acute kidney injury [Unknown]
  - Generalised tonic-clonic seizure [Unknown]
  - Vision blurred [Unknown]
  - Hyponatraemia [Recovering/Resolving]
  - Metabolic acidosis [Unknown]
  - Hypovolaemia [Recovering/Resolving]
  - Vomiting [Recovering/Resolving]
  - Diarrhoea [Recovering/Resolving]
  - Pancytopenia [Recovering/Resolving]
  - Abdominal pain [Recovering/Resolving]
  - Tachycardia [Unknown]
  - Dysphagia [Unknown]
  - Epistaxis [Unknown]

NARRATIVE: CASE EVENT DATE: 20220321
